FAERS Safety Report 16854819 (Version 1)
Quarter: 2019Q3

REPORT INFORMATION
  Report Type: Spontaneous
  Country: US (occurrence: US)
  Receive Date: 20190805
  Receipt Date: 20190805
  Transmission Date: 20191005
  Serious: No
  Sender: FDA-Public Use
  Company Number: None

PATIENT
  Age: 15 Year
  Sex: Female

DRUGS (1)
  1. MEKINIST [Suspect]
     Active Substance: TRAMETINIB DIMETHYL SULFOXIDE
     Dates: start: 201907

REACTIONS (5)
  - Rash [None]
  - Dyspepsia [None]
  - Diarrhoea [None]
  - Nausea [None]
  - Off label use [None]

NARRATIVE: CASE EVENT DATE: 20190805
